FAERS Safety Report 9549298 (Version 1)
Quarter: 2013Q2

REPORT INFORMATION
  Report Type: Spontaneous
  Country: US (occurrence: None)
  Receive Date: 20130627
  Receipt Date: 20130627
  Transmission Date: 20140414
  Serious: No
  Sender: FDA-Public Use
  Company Number: 1000043997

PATIENT
  Age: 62 Year
  Sex: Female

DRUGS (4)
  1. LINZESS (LINACLOTIDE) (290 MICROGRAM, CAPSULES) [Suspect]
     Indication: IRRITABLE BOWEL SYNDROME
     Dosage: 290 MCG (290 MCG, 1 IN 1 D), ORAL
     Route: 048
     Dates: start: 20130325, end: 20130326
  2. ROBINUL (GLYCOPYRRONIUM BROMIDE) (GLYCOPYRRONIUM BROMIDE) [Concomitant]
  3. PERI-COLACE (DOCUSATE, SENNA) (DOCUSATE, SENNA) [Concomitant]
  4. XANAX [Concomitant]

REACTIONS (1)
  - Diarrhoea [None]
